FAERS Safety Report 19117738 (Version 1)
Quarter: 2021Q2

REPORT INFORMATION
  Report Type: Spontaneous
  Country: US (occurrence: US)
  Receive Date: 20210409
  Receipt Date: 20210409
  Transmission Date: 20210717
  Serious: No
  Sender: FDA-Public Use
  Company Number: US-ASTRAZENECA-2021A151340

PATIENT
  Sex: Male
  Weight: 108.9 kg

DRUGS (2)
  1. BYDUREON BCISE [Suspect]
     Active Substance: EXENATIDE
     Indication: TYPE 2 DIABETES MELLITUS
     Route: 058
  2. COVID SHOT [Concomitant]
     Indication: COVID-19 PROPHYLAXIS
     Dosage: SECOND SHOT

REACTIONS (6)
  - Feeling abnormal [Unknown]
  - Device leakage [Unknown]
  - Blood blister [Unknown]
  - Pain in extremity [Unknown]
  - Injection site pain [Unknown]
  - Injection site bruising [Unknown]

NARRATIVE: CASE EVENT DATE: 20210311
